FAERS Safety Report 6114809-X (Version None)
Quarter: 2009Q1

REPORT INFORMATION
  Report Type: 
  Country: None (occurrence: None)
  Receive Date: 20090313
  Receipt Date: 20090304
  Transmission Date: 20090719
  Serious: Yes (Hospitalization)
  Sender: FDA-Public Use
  Company Number: DE-CELGENEUS-062-C5013-09011032

PATIENT
  Sex: Male
  Weight: 76 kg

DRUGS (13)
  1. THALIDOMIDE [Suspect]
     Indication: MULTIPLE MYELOMA
     Route: 048
     Dates: start: 20081016, end: 20090119
  2. MELPHALAN [Suspect]
     Indication: MULTIPLE MYELOMA
     Route: 065
     Dates: start: 20081016, end: 20090117
  3. PREDNISONE [Suspect]
     Indication: MULTIPLE MYELOMA
     Route: 065
     Dates: start: 20081016, end: 20090116
  4. CAPTOPRIL [Concomitant]
     Indication: HYPERTENSION
     Route: 048
     Dates: start: 19830101
  5. DIPYRONE INJ [Concomitant]
     Indication: PAIN
     Route: 048
     Dates: start: 20081001
  6. PAMIFOS [Concomitant]
     Indication: MULTIPLE MYELOMA
     Route: 051
     Dates: start: 20081001
  7. ACETYLSALICYLIC ACID [Concomitant]
     Indication: THROMBOSIS PROPHYLAXIS
     Route: 048
     Dates: start: 20081022
  8. CEFUROXIME [Concomitant]
     Route: 048
     Dates: start: 20081225
  9. TAVANIC [Concomitant]
     Indication: INFECTION PROPHYLAXIS
     Route: 048
     Dates: start: 20090106
  10. ENOXAPARIN SODIUM [Concomitant]
     Indication: THROMBOSIS PROPHYLAXIS
     Route: 058
     Dates: start: 20090119, end: 20090119
  11. RAMIPRIL [Concomitant]
     Indication: DRUG USE FOR UNKNOWN INDICATION
     Route: 065
  12. TRIAMTEREN [Concomitant]
     Indication: DRUG USE FOR UNKNOWN INDICATION
     Route: 065
  13. PANTOPRAZOLE SODIUM [Concomitant]
     Indication: DRUG USE FOR UNKNOWN INDICATION
     Route: 065

REACTIONS (2)
  - DEEP VEIN THROMBOSIS [None]
  - PULMONARY EMBOLISM [None]
